FAERS Safety Report 5266037-8 (Version None)
Quarter: 2007Q1

REPORT INFORMATION
  Report Type: 
  Country: None (occurrence: None)
  Receive Date: 20070315
  Receipt Date: 20070302
  Transmission Date: 20070707
  Serious: Yes (Other)
  Sender: FDA-Public Use
  Company Number: PHHO2007JP04270

PATIENT
  Age: 72 Year
  Sex: Female

DRUGS (4)
  1. DIOVAN [Suspect]
     Indication: HYPERTENSION
     Dosage: 80 MG, QD
     Route: 048
     Dates: start: 20030603, end: 20050704
  2. MEVALOTIN [Suspect]
     Indication: HYPERCHOLESTEROLAEMIA
     Dosage: 10 MG, QD
     Route: 048
     Dates: start: 20030602, end: 20050704
  3. PANTOSIN [Concomitant]
  4. MAGNESIUM OXIDE [Concomitant]

REACTIONS (3)
  - CARDIAC PACEMAKER INSERTION [None]
  - DIZZINESS [None]
  - SICK SINUS SYNDROME [None]
